FAERS Safety Report 7900752-X (Version None)
Quarter: 2011Q4

REPORT INFORMATION
  Report Type: 
  Country: None (occurrence: None)
  Receive Date: 20111108
  Receipt Date: 20111102
  Transmission Date: 20120403
  Serious: Yes (Death)
  Sender: FDA-Public Use
  Company Number: US-CELGENEUS-163-21660-11110399

PATIENT
  Sex: Female
  Weight: 58.521 kg

DRUGS (18)
  1. ABRAXANE [Suspect]
     Indication: OVARIAN CANCER
     Route: 033
     Dates: start: 20110822
  2. KLONEX [Concomitant]
     Dosage: 15G/60ML
     Route: 048
     Dates: start: 20110822
  3. METOCLOPRAMIDE [Concomitant]
     Dosage: 10 MILLIGRAM
     Route: 048
     Dates: start: 20110721
  4. VANCOMYCIN [Concomitant]
     Route: 041
     Dates: start: 20110929
  5. FLUCONAZOLE [Concomitant]
     Route: 065
     Dates: start: 20111001
  6. LEVAQUIN [Concomitant]
     Route: 041
     Dates: start: 20110929
  7. LOVENOX [Concomitant]
     Dosage: 80MG/0.8ML
     Route: 058
     Dates: start: 20110926
  8. ONDANSETRON [Concomitant]
     Indication: NAUSEA
     Dosage: 4 MILLIGRAM
     Route: 048
     Dates: start: 20110906
  9. VICODIN [Concomitant]
     Indication: PAIN
     Dosage: 500MG-5MG
     Route: 048
     Dates: start: 20110725
  10. AVIDOXY [Concomitant]
     Dosage: 100 MILLIGRAM
     Route: 048
  11. TOBRAMYCIN [Concomitant]
     Route: 065
     Dates: start: 20111001
  12. NEUPOGEN [Concomitant]
     Indication: NEUTROPENIA
     Route: 065
  13. ABRAXANE [Suspect]
     Route: 033
     Dates: start: 20110926
  14. CELEXA [Concomitant]
     Dosage: 10 MILLIGRAM
     Route: 048
  15. AZTREONAM [Concomitant]
     Route: 065
     Dates: start: 20111001
  16. IMIPENEM [Concomitant]
     Route: 065
     Dates: start: 20111001
  17. ONDANSETRON [Concomitant]
     Indication: VOMITING
  18. TYLENOL-500 [Concomitant]
     Indication: PAIN
     Dosage: 650 MILLIGRAM
     Route: 048

REACTIONS (2)
  - NEUTROPHIL COUNT DECREASED [None]
  - UROSEPSIS [None]
